FAERS Safety Report 8451284-4 (Version None)
Quarter: 2012Q2

REPORT INFORMATION
  Report Type: 
  Country: None (occurrence: None)
  Receive Date: 20120620
  Receipt Date: 20120301
  Transmission Date: 20120825
  Serious: No
  Sender: FDA-Public Use
  Company Number: US-VERTEX PHARMACEUTICALS INC.-AE-2012-002308

PATIENT
  Sex: Male
  Weight: 92.616 kg

DRUGS (5)
  1. INCIVEK [Suspect]
     Indication: HEPATITIS C
     Route: 048
     Dates: start: 20111201
  2. PEGASYS [Concomitant]
     Indication: HEPATITIS C
     Dates: start: 20111201
  3. PROTAC [Concomitant]
  4. RIBAVIRIN [Concomitant]
     Indication: HEPATITIS C
     Dates: start: 20111201
  5. NAPROXEN [Concomitant]

REACTIONS (4)
  - PROCTALGIA [None]
  - COUGH [None]
  - ANAEMIA [None]
  - PRURITUS GENERALISED [None]
